FAERS Safety Report 5669272-X (Version None)
Quarter: 2008Q1

REPORT INFORMATION
  Report Type: 
  Country: None (occurrence: None)
  Receive Date: 20080317
  Receipt Date: 20080305
  Transmission Date: 20080703
  Serious: Yes (Hospitalization, Disabling, Other)
  Sender: FDA-Public Use
  Company Number: US-ELI_LILLY_AND_COMPANY-US_0503114738

PATIENT
  Sex: Male

DRUGS (1)
  1. ZYPREXA [Suspect]
     Indication: ANXIETY
     Dosage: UNK, UNKNOWN
     Dates: start: 19970107, end: 20000101

REACTIONS (15)
  - BLINDNESS [None]
  - BLOOD GLUCOSE INCREASED [None]
  - CARDIAC FAILURE CONGESTIVE [None]
  - CELLULITIS [None]
  - DELIRIUM [None]
  - DIABETES MELLITUS [None]
  - EXTREMITY NECROSIS [None]
  - FLUID RETENTION [None]
  - HEPATIC FAILURE [None]
  - HYPERTENSION [None]
  - OBESITY [None]
  - OEDEMA PERIPHERAL [None]
  - POLYDIPSIA [None]
  - TERMINAL STATE [None]
  - WEIGHT INCREASED [None]
